FAERS Safety Report 4633785-X (Version None)
Quarter: 2005Q2

REPORT INFORMATION
  Report Type: 
  Country: None (occurrence: None)
  Receive Date: 20050413
  Receipt Date: 20050310
  Transmission Date: 20051028
  Serious: Yes (Other)
  Sender: FDA-Public Use
  Company Number: PHHO2005CA04305

PATIENT
  Sex: Female

DRUGS (1)
  1. CLOZARIL [Suspect]
     Route: 048
     Dates: start: 20001129

REACTIONS (1)
  - PERNICIOUS ANAEMIA [None]
